FAERS Safety Report 13687143 (Version 1)
Quarter: 2017Q2

REPORT INFORMATION
  Report Type: Spontaneous
  Country: US (occurrence: US)
  Receive Date: 20170623
  Receipt Date: 20170623
  Transmission Date: 20170830
  Serious: Yes (Other)
  Sender: FDA-Public Use
  Company Number: US-009507513-1706USA006255

PATIENT

DRUGS (2)
  1. ZEMURON [Concomitant]
     Active Substance: ROCURONIUM BROMIDE
  2. BRIDION [Suspect]
     Active Substance: SUGAMMADEX
     Indication: NEUROMUSCULAR BLOCKADE REVERSAL
     Dosage: UNK, STRENGTH: 100 MG/ML

REACTIONS (1)
  - Bradycardia [Recovered/Resolved]
